FAERS Safety Report 6218440-7 (Version None)
Quarter: 2009Q2

REPORT INFORMATION
  Report Type: 
  Country: None (occurrence: None)
  Receive Date: 20090608
  Receipt Date: 20090528
  Transmission Date: 20091009
  Serious: Yes (Death)
  Sender: FDA-Public Use
  Company Number: A0789117A

PATIENT
  Age: 27 Year
  Sex: Female

DRUGS (1)
  1. PROMACTA [Suspect]
     Indication: NON-HODGKIN'S LYMPHOMA
     Dosage: 50MG PER DAY
     Route: 048
     Dates: end: 20090101

REACTIONS (1)
  - NON-HODGKIN'S LYMPHOMA [None]
